FAERS Safety Report 9736510 (Version 1)
Quarter: 2013Q4

REPORT INFORMATION
  Report Type: Report from Study
  Country: LB (occurrence: LB)
  Receive Date: 20131206
  Receipt Date: 20131206
  Transmission Date: 20140711
  Serious: Yes (Death, Other)
  Sender: FDA-Public Use
  Company Number: LB-SA-2013SA126942

PATIENT
  Age: 55 Year
  Sex: Male

DRUGS (13)
  1. LANTUS [Suspect]
     Indication: PRODUCT USED FOR UNKNOWN INDICATION
     Route: 065
     Dates: start: 2013
  2. ACTOS [Concomitant]
  3. NOVONORM [Concomitant]
  4. ATORVASTATIN [Concomitant]
  5. CORVASAL [Concomitant]
  6. BURINEX [Concomitant]
  7. CORDARONE [Concomitant]
  8. CONCOR [Concomitant]
  9. ALDACTONE [Concomitant]
  10. ASPICOT [Concomitant]
  11. ATARAX [Concomitant]
  12. SOLOSTAR [Concomitant]
  13. INSULIN GLULISINE [Concomitant]

REACTIONS (1)
  - Myocardial infarction [Fatal]
